FAERS Safety Report 23210855 (Version 1)
Quarter: 2023Q4

REPORT INFORMATION
  Report Type: Spontaneous
  Country: IT (occurrence: IT)
  Receive Date: 20231121
  Receipt Date: 20231121
  Transmission Date: 20240109
  Serious: Yes (Hospitalization, Other)
  Sender: FDA-Public Use
  Company Number: None

PATIENT
  Age: 63 Year
  Sex: Female
  Weight: 60 kg

DRUGS (3)
  1. MEKTOVI [Suspect]
     Active Substance: BINIMETINIB
     Indication: Metastatic malignant melanoma
     Dosage: UNK
     Route: 048
     Dates: start: 20221201, end: 20230501
  2. BRAFTOVI [Suspect]
     Active Substance: ENCORAFENIB
     Indication: Metastatic malignant melanoma
     Dosage: UNK
     Route: 048
     Dates: start: 20221201, end: 20230501
  3. TICHE [Concomitant]
     Indication: Post procedural hypothyroidism
     Dosage: 2 TABLETS PER DAY
     Route: 048
     Dates: start: 20131201

REACTIONS (4)
  - Hepatitis acute [Recovering/Resolving]
  - Confusional state [Unknown]
  - Blood thyroid stimulating hormone increased [Unknown]
  - Serum ferritin increased [Unknown]

NARRATIVE: CASE EVENT DATE: 20230729
